FAERS Safety Report 5949916-5 (Version None)
Quarter: 2008Q4

REPORT INFORMATION
  Report Type: 
  Country: None (occurrence: None)
  Receive Date: 20081112
  Receipt Date: 20081104
  Transmission Date: 20090506
  Serious: Yes (Hospitalization)
  Sender: FDA-Public Use
  Company Number: JP-BAYER-200811450BYL

PATIENT
  Age: 70 Year
  Sex: Male

DRUGS (8)
  1. NEXAVAR [Suspect]
     Indication: RENAL CELL CARCINOMA STAGE III
     Dosage: UNIT DOSE: 200 MG
     Route: 048
     Dates: start: 20080606, end: 20080612
  2. NEXAVAR [Suspect]
     Dosage: UNIT DOSE: 200 MG
     Route: 048
     Dates: start: 20080630, end: 20080630
  3. NEXAVAR [Suspect]
     Route: 048
     Dates: start: 20081008
  4. NEXAVAR [Suspect]
     Route: 048
     Dates: start: 20081021
  5. PREDONINE [Concomitant]
     Indication: RHEUMATOID ARTHRITIS
     Dosage: TOTAL DAILY DOSE: 5 MG  UNIT DOSE: 5 MG
     Route: 048
     Dates: start: 20070101
  6. TATSUPLAMIN [Concomitant]
     Route: 048
     Dates: start: 20070101
  7. PEON [Concomitant]
     Route: 048
     Dates: start: 20070101
  8. FAMOTIDINE [Concomitant]
     Route: 048
     Dates: start: 20070101

REACTIONS (4)
  - HYPERTENSION [None]
  - HYPOTENSION [None]
  - PALMAR-PLANTAR ERYTHRODYSAESTHESIA SYNDROME [None]
  - PYREXIA [None]
